FAERS Safety Report 20878665 (Version 1)
Quarter: 2022Q2

REPORT INFORMATION
  Report Type: Spontaneous
  Country: US (occurrence: US)
  Receive Date: 20220526
  Receipt Date: 20220526
  Transmission Date: 20220721
  Serious: No
  Sender: FDA-Public Use
  Company Number: US-PFIZER INC-202200742751

PATIENT
  Age: 44 Year
  Sex: Male

DRUGS (4)
  1. PAXLOVID [Suspect]
     Active Substance: NIRMATRELVIR\RITONAVIR
     Indication: COVID-19 treatment
     Dosage: UNK
     Dates: start: 20220510, end: 20220514
  2. SIMVASTATIN [Concomitant]
     Active Substance: SIMVASTATIN
     Dosage: UNK
     Dates: end: 20220507
  3. OLMESARTAN [Concomitant]
     Active Substance: OLMESARTAN
     Dosage: 5 MG, 2X/DAY
  4. ASPIRIN [Concomitant]
     Active Substance: ASPIRIN
     Dosage: 81 MG

REACTIONS (3)
  - Hepatic pain [Not Recovered/Not Resolved]
  - Hepatic enzyme increased [Not Recovered/Not Resolved]
  - Gastrointestinal disorder [Not Recovered/Not Resolved]

NARRATIVE: CASE EVENT DATE: 20220514
